FAERS Safety Report 16240739 (Version 1)
Quarter: 2019Q2

REPORT INFORMATION
  Report Type: Spontaneous
  Country: TR (occurrence: TR)
  Receive Date: 20190425
  Receipt Date: 20190425
  Transmission Date: 20190711
  Serious: Yes (Hospitalization, Other)
  Sender: FDA-Public Use
  Company Number: TR-PFIZER INC-2019172332

PATIENT
  Age: 16 Year
  Sex: Male

DRUGS (1)
  1. AMIODARONE HCL [Suspect]
     Active Substance: AMIODARONE HYDROCHLORIDE
     Indication: VENTRICULAR ARRHYTHMIA
     Dosage: 200 MG, QD

REACTIONS (10)
  - Pulmonary toxicity [Recovering/Resolving]
  - Tachypnoea [Recovering/Resolving]
  - Loss of consciousness [Recovering/Resolving]
  - Haemoptysis [Recovering/Resolving]
  - Oxygen saturation decreased [Recovering/Resolving]
  - Somnolence [Recovering/Resolving]
  - Dizziness [Recovering/Resolving]
  - Hypoaesthesia oral [Recovering/Resolving]
  - Ejection fraction decreased [Recovering/Resolving]
  - Cough [Recovering/Resolving]
